FAERS Safety Report 10664115 (Version 6)
Quarter: 2015Q1

REPORT INFORMATION
  Report Type: Report from Study
  Country: TR (occurrence: TR)
  Receive Date: 20141219
  Receipt Date: 20150324
  Transmission Date: 20150720
  Serious: Yes (Hospitalization, Other)
  Sender: FDA-Public Use
  Company Number: PHHY2014TR038458

PATIENT
  Age: 7 Year
  Sex: Male
  Weight: 22 kg

DRUGS (2)
  1. EXJADE [Suspect]
     Active Substance: DEFERASIROX
     Indication: THALASSAEMIA BETA
     Dosage: 500 MG, QD
     Route: 048
     Dates: start: 2010, end: 20150216
  2. EXJADE [Suspect]
     Active Substance: DEFERASIROX
     Dosage: 625 MG, QD
     Route: 048
     Dates: start: 20150224

REACTIONS (9)
  - Urinary tract infection [Unknown]
  - Malaise [Unknown]
  - Gastrointestinal infection [Recovering/Resolving]
  - Abdominal pain [Recovering/Resolving]
  - Facial bones fracture [Recovered/Resolved]
  - Fall [Unknown]
  - Vomiting [Recovering/Resolving]
  - Epistaxis [Recovered/Resolved]
  - Diarrhoea [Recovered/Resolved]

NARRATIVE: CASE EVENT DATE: 20140321
